FAERS Safety Report 9115410 (Version 1)
Quarter: 2013Q1

REPORT INFORMATION
  Report Type: Spontaneous
  Country: US (occurrence: None)
  Receive Date: 20130129
  Receipt Date: 20130129
  Transmission Date: 20140127
  Serious: No
  Sender: FDA-Public Use
  Company Number: 4321442-2013-00002

PATIENT
  Sex: Male

DRUGS (1)
  1. FLUDEOXYGLUCOSE [Suspect]
     Indication: POSITRON EMISSION TOMOGRAM
     Route: 042
     Dates: start: 20130109

REACTIONS (1)
  - Vomiting [None]
